FAERS Safety Report 9008314 (Version 2)
Quarter: 2013Q1

REPORT INFORMATION
  Report Type: Spontaneous
  Country: US (occurrence: None)
  Receive Date: 20121227
  Receipt Date: 20130213
  Transmission Date: 20140127
  Serious: Yes (Death, Other)
  Sender: FDA-Public Use
  Company Number: TPA2012A10153

PATIENT
  Age: 90 Year
  Sex: Female
  Weight: 62.14 kg

DRUGS (3)
  1. ACTOS [Suspect]
     Indication: TYPE 2 DIABETES MELLITUS
     Dates: start: 20060607, end: 20091126
  2. METFORMIN(METFORMIN) [Concomitant]
  3. DIABETA(GLIBENCLAMIDE) [Concomitant]

REACTIONS (4)
  - Bladder cancer [None]
  - Urinary tract infection [None]
  - Haematuria [None]
  - Dysuria [None]
